FAERS Safety Report 17084632 (Version 2)
Quarter: 2019Q4

REPORT INFORMATION
  Report Type: Report from Study
  Country: CO (occurrence: CO)
  Receive Date: 20191127
  Receipt Date: 20191220
  Transmission Date: 20200122
  Serious: Yes (Disabling)
  Sender: FDA-Public Use
  Company Number: CO-ALLERGAN-1946744US

PATIENT
  Sex: Female
  Weight: 59 kg

DRUGS (3)
  1. BLINDED BIMATOPROST 0.01 MG INS (11047X) [Suspect]
     Active Substance: BIMATOPROST
     Indication: OPEN ANGLE GLAUCOMA
     Dosage: UNK
     Dates: start: 20180228, end: 20181121
  2. BLINDED PLACEBO [Suspect]
     Active Substance: INVESTIGATIONAL PRODUCT
     Indication: OPEN ANGLE GLAUCOMA
     Dosage: UNK
     Dates: start: 20180228, end: 20181121
  3. BLINDED BIMATOPROST 0.015 MG INS (11048X) [Suspect]
     Active Substance: BIMATOPROST
     Indication: OPEN ANGLE GLAUCOMA
     Dosage: UNK
     Dates: start: 20180228, end: 20181121

REACTIONS (1)
  - Corneal endothelial cell loss [Not Recovered/Not Resolved]

NARRATIVE: CASE EVENT DATE: 20191113
